FAERS Safety Report 18547606 (Version 1)
Quarter: 2020Q4

REPORT INFORMATION
  Report Type: Spontaneous
  Country: TH (occurrence: TH)
  Receive Date: 20201125
  Receipt Date: 20201125
  Transmission Date: 20210114
  Serious: Yes (Death, Other)
  Sender: FDA-Public Use
  Company Number: TH-B.I. PHARMACEUTICALS,INC./RIDGEFIELD-2020-BI-063622

PATIENT
  Age: 50 Year
  Sex: Male

DRUGS (2)
  1. OFEV [Suspect]
     Active Substance: NINTEDANIB
     Indication: IDIOPATHIC PULMONARY FIBROSIS
     Dosage: THE PATIENT STOPPED TAKING OFEV FOR 3-4 MONTHS DURING THE COVID-19 OUTBREAK DUE TO FINANCIAL ISSUES.
     Route: 048
     Dates: start: 201910
  2. OFEV [Suspect]
     Active Substance: NINTEDANIB
     Dosage: ON AN UNKNOWN DATE, THE PATIENT RESUMED TREATMENT WITH OFEV.
     Route: 048
     Dates: start: 2020

REACTIONS (1)
  - Idiopathic pulmonary fibrosis [Fatal]
